FAERS Safety Report 7586231-0 (Version None)
Quarter: 2011Q3

REPORT INFORMATION
  Report Type: 
  Country: None (occurrence: None)
  Receive Date: 20110701
  Receipt Date: 20110624
  Transmission Date: 20111222
  Serious: Yes (Death)
  Sender: FDA-Public Use
  Company Number: BR-NOVOPROD-326426

PATIENT
  Age: 86 Year
  Sex: Female

DRUGS (1)
  1. NOVOLOG MIX 70/30 [Suspect]
     Indication: DIABETES MELLITUS
     Dosage: UNK
     Route: 065

REACTIONS (1)
  - DEATH [None]
